FAERS Safety Report 13823755 (Version 3)
Quarter: 2020Q1

REPORT INFORMATION
  Report Type: Spontaneous
  Country: US (occurrence: US)
  Receive Date: 20170802
  Receipt Date: 20200227
  Transmission Date: 20200409
  Serious: No
  Sender: FDA-Public Use
  Company Number: PHEH2017US023453

PATIENT
  Sex: Male

DRUGS (1)
  1. AZOPT [Suspect]
     Active Substance: BRINZOLAMIDE
     Indication: PRODUCT USED FOR UNKNOWN INDICATION
     Route: 047

REACTIONS (7)
  - Wrong technique in product usage process [Unknown]
  - Product administration error [Unknown]
  - Abnormal sensation in eye [Unknown]
  - Incorrect dose administered [Unknown]
  - Visual impairment [Unknown]
  - Exfoliation syndrome [Unknown]
  - Product physical consistency issue [Unknown]
